FAERS Safety Report 23787421 (Version 1)
Quarter: 2024Q2

REPORT INFORMATION
  Report Type: Spontaneous
  Country: SK (occurrence: SK)
  Receive Date: 20240426
  Receipt Date: 20240426
  Transmission Date: 20240715
  Serious: Yes (Other)
  Sender: FDA-Public Use
  Company Number: SK-Accord-420379

PATIENT
  Age: 32 Year
  Sex: Female

DRUGS (1)
  1. PACLITAXEL [Suspect]
     Active Substance: PACLITAXEL
     Indication: Breast cancer
     Dates: start: 2021, end: 202109

REACTIONS (4)
  - Leukopenia [Unknown]
  - Anaemia [Unknown]
  - Enteritis [Unknown]
  - Rhinitis [Unknown]

NARRATIVE: CASE EVENT DATE: 20210101
